FAERS Safety Report 4380612-4 (Version None)
Quarter: 2004Q2

REPORT INFORMATION
  Report Type: 
  Country: None (occurrence: None)
  Receive Date: 20040610
  Receipt Date: 20040308
  Transmission Date: 20050107
  Serious: Yes (Other)
  Sender: FDA-Public Use
  Company Number: A03200400708

PATIENT
  Age: 73 Year
  Sex: Female
  Weight: 63.5036 kg

DRUGS (10)
  1. ELOXATIN [Suspect]
     Indication: COLORECTAL CANCER
     Dosage: 136 MG Q2W - INTRAVENOUS NOS
     Route: 042
     Dates: start: 20040114, end: 20040114
  2. ELOXATIN [Suspect]
     Indication: METASTASES TO LIVER
     Dosage: 136 MG Q2W - INTRAVENOUS NOS
     Route: 042
     Dates: start: 20040114, end: 20040114
  3. FLUOROURACIL [Concomitant]
  4. LEUCOVORIN [Concomitant]
  5. DEXAMETHASONE [Concomitant]
  6. ONDANSETRON HCL [Concomitant]
  7. LORAZEPAM [Concomitant]
  8. HYDROCHLOROTHIAZIDE [Concomitant]
  9. CLONIDINE HCL [Concomitant]
  10. POTASSIUM [Concomitant]

REACTIONS (7)
  - ANAPHYLACTIC REACTION [None]
  - BLOOD PRESSURE DECREASED [None]
  - DYSPNOEA [None]
  - HYPERHIDROSIS [None]
  - OXYGEN SATURATION DECREASED [None]
  - SWOLLEN TONGUE [None]
  - WHEEZING [None]
